FAERS Safety Report 14012215 (Version 2)
Quarter: 2017Q4

REPORT INFORMATION
  Report Type: Spontaneous
  Country: US (occurrence: US)
  Receive Date: 20170926
  Receipt Date: 20171005
  Transmission Date: 20180321
  Serious: No
  Sender: FDA-Public Use
  Company Number: US-009507513-1709USA011891

PATIENT
  Sex: Male
  Weight: 33.56 kg

DRUGS (1)
  1. ASMANEX [Suspect]
     Active Substance: MOMETASONE FUROATE
     Indication: BRONCHIAL HYPERREACTIVITY
     Dosage: 220 MICROGRAM, TWO INHALATIONS AT NIGHT
     Route: 055
     Dates: start: 20170902, end: 20170912

REACTIONS (3)
  - Drug dose omission [Unknown]
  - No adverse event [Unknown]
  - Product quality issue [Unknown]
